APPROVED DRUG PRODUCT: NYSTATIN
Active Ingredient: NYSTATIN
Strength: 100,000 UNITS/GM
Dosage Form/Route: CREAM;TOPICAL
Application: A062457 | Product #001
Applicant: SUN PHARMA CANADA INC
Approved: Jul 28, 1983 | RLD: No | RS: No | Type: DISCN